FAERS Safety Report 8257229-4 (Version None)
Quarter: 2012Q1

REPORT INFORMATION
  Report Type: 
  Country: None (occurrence: None)
  Receive Date: 20120330
  Receipt Date: 20120319
  Transmission Date: 20120608
  Serious: Yes (Other)
  Sender: FDA-Public Use
  Company Number: DSA_55181_2012

PATIENT
  Age: 48 Year
  Sex: Female

DRUGS (2)
  1. BUPROPION HCL [Suspect]
     Indication: DEPRESSION
     Dosage: (150 MG QD ORAL)
     Route: 048
     Dates: start: 20100101, end: 20100101
  2. ANTIBIOTICS (ANTIBIOTICS) [Suspect]
     Indication: URINARY TRACT INFECTION
     Dosage: (DF)

REACTIONS (4)
  - FAECAL INCONTINENCE [None]
  - URINARY TRACT INFECTION [None]
  - URINARY INCONTINENCE [None]
  - EPILEPSY [None]
